FAERS Safety Report 6153658-3 (Version None)
Quarter: 2009Q2

REPORT INFORMATION
  Report Type: 
  Country: None (occurrence: None)
  Receive Date: 20090409
  Receipt Date: 20090403
  Transmission Date: 20091009
  Serious: Yes (Death, Other)
  Sender: FDA-Public Use
  Company Number: 2009SP006185

PATIENT
  Age: 69 Year
  Sex: Male

DRUGS (4)
  1. INTRON A [Suspect]
     Indication: MALIGNANT MELANOMA
     Dosage: 40 MIU; ; IV
     Route: 042
     Dates: start: 20081103, end: 20081119
  2. ACETAMINOPHEN [Concomitant]
  3. IBUPROFEN [Concomitant]
  4. METOCLORPAMID [Concomitant]

REACTIONS (8)
  - ARRHYTHMIA [None]
  - BLOOD CREATINE PHOSPHOKINASE INCREASED [None]
  - CHILLS [None]
  - DIARRHOEA [None]
  - HYPOKALAEMIA [None]
  - MULTI-ORGAN FAILURE [None]
  - NAUSEA [None]
  - PYREXIA [None]
